FAERS Safety Report 20586362 (Version 1)
Quarter: 2022Q1

REPORT INFORMATION
  Report Type: Spontaneous
  Country: US (occurrence: US)
  Receive Date: 20220313
  Receipt Date: 20220313
  Transmission Date: 20220423
  Serious: Yes (Other)
  Sender: FDA-Public Use
  Company Number: US-MLMSERVICE-20220214-3373338-1

PATIENT
  Age: 56 Year
  Sex: Female

DRUGS (6)
  1. PREDNISONE [Suspect]
     Active Substance: PREDNISONE
     Indication: Sarcoidosis
     Dosage: UNK
     Route: 065
  2. PREDNISONE [Suspect]
     Active Substance: PREDNISONE
     Indication: Cardiac sarcoidosis
  3. PREDNISONE [Suspect]
     Active Substance: PREDNISONE
     Indication: Pulmonary sarcoidosis
  4. ADENOSINE [Concomitant]
     Active Substance: ADENOSINE
     Indication: Tachycardia
     Dosage: UNK
     Route: 065
  5. AMIODARONE [Concomitant]
     Active Substance: AMIODARONE
     Indication: Tachycardia
     Dosage: UNK
     Route: 042
  6. DILTIAZEM [Concomitant]
     Active Substance: DILTIAZEM
     Indication: Tachycardia
     Dosage: UNK
     Route: 042

REACTIONS (1)
  - Myopathy [Unknown]
